FAERS Safety Report 5096478-3 (Version None)
Quarter: 2006Q3

REPORT INFORMATION
  Report Type: 
  Country: None (occurrence: None)
  Receive Date: 20060830
  Receipt Date: 20060814
  Transmission Date: 20061208
  Serious: Yes (Other)
  Sender: FDA-Public Use
  Company Number: 8018515

PATIENT
  Sex: Female

DRUGS (2)
  1. PREDNISOLONE [Suspect]
  2. ACTOS [Suspect]

REACTIONS (1)
  - MACULAR OEDEMA [None]
